FAERS Safety Report 4650711-8 (Version None)
Quarter: 2005Q2

REPORT INFORMATION
  Report Type: 
  Country: None (occurrence: None)
  Receive Date: 20050429
  Receipt Date: 20050420
  Transmission Date: 20051028
  Serious: Yes (Other)
  Sender: FDA-Public Use
  Company Number: 2005-01-1778

PATIENT
  Age: 3 Year
  Sex: Female
  Weight: 14.0615 kg

DRUGS (2)
  1. LORATADINE [Suspect]
     Indication: RHINORRHOEA
     Dosage: 5 ML ORAL
     Route: 048
     Dates: start: 20050121, end: 20050121
  2. LORATADINE [Suspect]
     Indication: SNEEZING
     Dosage: 5 ML ORAL
     Route: 048
     Dates: start: 20050121, end: 20050121

REACTIONS (1)
  - CONVULSION [None]
